FAERS Safety Report 21565786 (Version 5)
Quarter: 2023Q1

REPORT INFORMATION
  Report Type: Report from Study
  Country: IE (occurrence: IE)
  Receive Date: 20221108
  Receipt Date: 20230221
  Transmission Date: 20230418
  Serious: Yes (Other)
  Sender: FDA-Public Use
  Company Number: IE-002147023-NVSC2022IE240021

PATIENT
  Age: 27 Year
  Sex: Female

DRUGS (3)
  1. VOTRIENT [Suspect]
     Active Substance: PAZOPANIB HYDROCHLORIDE
     Indication: Soft tissue sarcoma
     Dosage: 600 MG
     Route: 048
     Dates: start: 20221017
  2. VOTRIENT [Suspect]
     Active Substance: PAZOPANIB HYDROCHLORIDE
     Dosage: 800 MG
     Route: 065
  3. VOTRIENT [Suspect]
     Active Substance: PAZOPANIB HYDROCHLORIDE
     Dosage: 600 MG
     Route: 048

REACTIONS (15)
  - Abdominal discomfort [Recovered/Resolved]
  - Hypertension [Not Recovered/Not Resolved]
  - Nasopharyngitis [Recovering/Resolving]
  - Liver function test increased [Unknown]
  - Arrhythmia [Recovering/Resolving]
  - Hair colour changes [Not Recovered/Not Resolved]
  - Illness [Unknown]
  - Chest discomfort [Recovered/Resolved]
  - Limb discomfort [Recovered/Resolved]
  - Blood pressure decreased [Unknown]
  - Neck pain [Unknown]
  - Pain in extremity [Unknown]
  - Nausea [Unknown]
  - Chest pain [Unknown]
  - Fatigue [Unknown]

NARRATIVE: CASE EVENT DATE: 20221224
